FAERS Safety Report 22391483 (Version 1)
Quarter: 2023Q2

REPORT INFORMATION
  Report Type: Spontaneous
  Country: US (occurrence: US)
  Receive Date: 20230601
  Receipt Date: 20230601
  Transmission Date: 20230722
  Serious: No
  Sender: FDA-Public Use
  Company Number: US-BRISTOL-MYERS SQUIBB COMPANY-2023-074213

PATIENT
  Sex: Female

DRUGS (5)
  1. SPRYCEL [Suspect]
     Active Substance: DASATINIB
     Indication: Product used for unknown indication
     Dosage: DOSE : UNKNOWN;     FREQ : TAKE TWO 20MG TABLETS PER DAY
  2. SPRYCEL [Suspect]
     Active Substance: DASATINIB
     Dosage: DOSE : UNKNOWN;     FREQ : TAKE TWO 20MG TABLETS PER DAY
  3. SPRYCEL [Suspect]
     Active Substance: DASATINIB
     Dosage: DOSE : UNKNOWN;     FREQ : TAKE TWO 20MG TABLETS PER DAY
  4. SPRYCEL [Suspect]
     Active Substance: DASATINIB
     Dosage: DOSE : UNKNOWN;     FREQ : TAKE TWO 20MG TABLETS PER DAY
  5. ASPIRIN [Concomitant]
     Active Substance: ASPIRIN
     Indication: Product used for unknown indication

REACTIONS (3)
  - Laboratory test abnormal [Unknown]
  - Adverse drug reaction [Unknown]
  - Bone pain [Unknown]
